FAERS Safety Report 6014871-9 (Version None)
Quarter: 2008Q4

REPORT INFORMATION
  Report Type: 
  Country: None (occurrence: None)
  Receive Date: 20081219
  Receipt Date: 20080820
  Transmission Date: 20090506
  Serious: No
  Sender: FDA-Public Use
  Company Number: US-B.I. PHARMACEUTICALS,INC./RIDGEFIELD-2008-BP-11826BP

PATIENT
  Sex: Male

DRUGS (8)
  1. FLOMAX [Suspect]
     Indication: NEPHROLITHIASIS
     Dosage: .8MG
     Route: 048
  2. FLOMAX [Suspect]
     Indication: PERINEAL PAIN
  3. ACTOS [Concomitant]
  4. JANUVIA [Concomitant]
  5. GLUCOPHAGE [Concomitant]
  6. CRESTOR [Concomitant]
  7. FISH OIL [Concomitant]
  8. ATACAND [Concomitant]

REACTIONS (3)
  - FLUSHING [None]
  - HEADACHE [None]
  - NASAL CONGESTION [None]
